FAERS Safety Report 9465750 (Version 1)
Quarter: 2013Q3

REPORT INFORMATION
  Report Type: Spontaneous
  Country: US (occurrence: US)
  Receive Date: 20130820
  Receipt Date: 20130820
  Transmission Date: 20140515
  Serious: No
  Sender: FDA-Public Use
  Company Number: US-ASTELLAS-2012US011870

PATIENT
  Age: 34 Year
  Sex: Male

DRUGS (1)
  1. AMBISOME [Suspect]
     Indication: PNEUMONIA
     Dosage: 400 MG, UNKNOWN/D
     Route: 042

REACTIONS (1)
  - Incorrect product storage [Unknown]
